FAERS Safety Report 16692602 (Version 1)
Quarter: 2019Q4

REPORT INFORMATION
  Report Type: Spontaneous
  Country: US (occurrence: US)
  Receive Date: 20190809
  Receipt Date: 20190809
  Transmission Date: 20200122
  Serious: Yes (Hospitalization)
  Sender: FDA-Public Use
  Company Number: None

PATIENT
  Age: 49 Year
  Sex: Male

DRUGS (1)
  1. NEUPOGEN [Suspect]
     Active Substance: FILGRASTIM
     Indication: HEPATIC CANCER
     Dosage: ?          QUANTITY:1 INJECTION(S);OTHER ROUTE:SUBCUTANEOUSLY?

REACTIONS (1)
  - Pain [None]

NARRATIVE: CASE EVENT DATE: 20190809
